FAERS Safety Report 17731337 (Version 5)
Quarter: 2021Q4

REPORT INFORMATION
  Report Type: Spontaneous
  Country: None (occurrence: US)
  Receive Date: 20200430
  Receipt Date: 20211130
  Transmission Date: 20220303
  Serious: No
  Sender: FDA-Public Use
  Company Number: US-AKCEA THERAPEUTICS-2020IS001040

PATIENT
  Age: 62 Year
  Sex: Male
  Weight: 106.86 kg

DRUGS (3)
  1. TEGSEDI [Suspect]
     Active Substance: INOTERSEN SODIUM
     Indication: Hereditary neuropathic amyloidosis
     Route: 058
     Dates: start: 20190709
  2. DEVICE [Suspect]
     Active Substance: DEVICE
  3. TEGSEDI [Suspect]
     Active Substance: INOTERSEN SODIUM
     Route: 058
     Dates: start: 20190718

REACTIONS (8)
  - Drug ineffective [Unknown]
  - Injection site bruising [Unknown]
  - Injection site discolouration [Unknown]
  - Abdominal distension [Unknown]
  - Injection site mass [Not Recovered/Not Resolved]
  - Glomerular filtration rate decreased [Not Recovered/Not Resolved]
  - Blood creatinine increased [Unknown]
  - Urine abnormality [Unknown]

NARRATIVE: CASE EVENT DATE: 20200818
